FAERS Safety Report 5281278-1 (Version None)
Quarter: 2007Q1

REPORT INFORMATION
  Report Type: 
  Country: None (occurrence: None)
  Receive Date: 20061218
  Receipt Date: 20060120
  Transmission Date: 20070707
  Serious: Yes (Hospitalization)
  Sender: FDA-Public Use
  Company Number: US200601001516

PATIENT
  Age: 50 Year
  Sex: Female

DRUGS (2)
  1. HUMULIN N [Suspect]
     Indication: DIABETES MELLITUS
  2. ILETIN NPH (INSULIN ISOPHANE BOVINE, INSULIN ISOPHANE PORCINE) VIAL [Concomitant]

REACTIONS (1)
  - HYPOGLYCAEMIA [None]
